FAERS Safety Report 7207060-3 (Version None)
Quarter: 2011Q1

REPORT INFORMATION
  Report Type: 
  Country: None (occurrence: None)
  Receive Date: 20110103
  Receipt Date: 20101221
  Transmission Date: 20110831
  Serious: Yes (Hospitalization)
  Sender: FDA-Public Use
  Company Number: B0691450A

PATIENT
  Sex: Female

DRUGS (2)
  1. LAPATINIB [Suspect]
     Dosage: 5TAB PER DAY
     Route: 065
     Dates: start: 20101202, end: 20101206
  2. CAPECITABINE [Suspect]
     Dosage: 3TAB TWICE PER DAY
     Route: 065

REACTIONS (3)
  - TOXIC SKIN ERUPTION [None]
  - URTICARIA [None]
  - RASH [None]
